FAERS Safety Report 10588612 (Version 2)
Quarter: 2015Q1

REPORT INFORMATION
  Report Type: Spontaneous
  Country: US (occurrence: US)
  Receive Date: 20141117
  Receipt Date: 20150115
  Transmission Date: 20150720
  Serious: Yes (Death, Hospitalization)
  Sender: FDA-Public Use
  Company Number: US-UNITED THERAPEUTICS-UNT-2014-010776

PATIENT
  Age: 17 Year
  Sex: Male
  Weight: 73.16 kg

DRUGS (4)
  1. REMODULIN [Suspect]
     Active Substance: TREPROSTINIL
     Indication: PULMONARY ARTERIAL HYPERTENSION
     Dosage: 0.0385 ?G/KG, CONTINUING
     Route: 041
     Dates: start: 20121224, end: 20141107
  2. ADCIRCA [Concomitant]
     Active Substance: TADALAFIL
     Indication: PRODUCT USED FOR UNKNOWN INDICATION
  3. NITRIC OXIDE. [Concomitant]
     Active Substance: NITRIC OXIDE
     Indication: PRODUCT USED FOR UNKNOWN INDICATION
  4. BOSENTAN [Concomitant]
     Active Substance: BOSENTAN\BOSENTAN MONOHYDRATE
     Indication: PRODUCT USED FOR UNKNOWN INDICATION

REACTIONS (14)
  - Acute kidney injury [Unknown]
  - Mycoplasma infection [Unknown]
  - Feeding disorder [Unknown]
  - Rhinovirus infection [Unknown]
  - Fluid overload [Unknown]
  - Hyperglycaemia [Unknown]
  - Hypotension [Unknown]
  - Metabolic alkalosis [Unknown]
  - Diarrhoea [Recovered/Resolved]
  - Dehydration [Recovered/Resolved]
  - Condition aggravated [Fatal]
  - Pulmonary hypertension [Unknown]
  - Respiratory failure [Unknown]
  - Vomiting [Recovered/Resolved]

NARRATIVE: CASE EVENT DATE: 2014
